FAERS Safety Report 10674294 (Version 1)
Quarter: 2014Q4

REPORT INFORMATION
  Report Type: Spontaneous
  Country: US (occurrence: None)
  Receive Date: 20141209
  Receipt Date: 20141209
  Transmission Date: 20150529
  Serious: Yes (Other)
  Sender: FDA-Public Use
  Company Number: 424253

PATIENT
  Age: 78 Year
  Sex: Male
  Weight: 66.2 kg

DRUGS (2)
  1. NOVOLIN N [Suspect]
     Active Substance: INSULIN HUMAN
     Indication: TYPE 1 DIABETES MELLITUS
     Dosage: 6 U
     Route: 058
     Dates: start: 20140818
  2. NOVOLOG [Suspect]
     Active Substance: INSULIN ASPART
     Indication: TYPE 1 DIABETES MELLITUS
     Dosage: BEFORE MEALS,
     Route: 058
     Dates: start: 20140731

REACTIONS (3)
  - Blood glucose increased [None]
  - Hypoglycaemic unconsciousness [None]
  - Muscle spasms [None]
